FAERS Safety Report 23486996 (Version 1)
Quarter: 2024Q1

REPORT INFORMATION
  Report Type: Spontaneous
  Country: US (occurrence: US)
  Receive Date: 20240206
  Receipt Date: 20240206
  Transmission Date: 20240410
  Serious: Yes (Other)
  Sender: FDA-Public Use
  Company Number: US-SANDOZ-SDZ2024US011313

PATIENT
  Age: 38 Year
  Sex: Male

DRUGS (4)
  1. AZITHROMYCIN [Interacting]
     Active Substance: AZITHROMYCIN
     Indication: Mycobacterium avium complex infection
     Dosage: UNK
     Route: 065
     Dates: start: 202205
  2. BIKTARVY [Interacting]
     Active Substance: BICTEGRAVIR SODIUM\EMTRICITABINE\TENOFOVIR ALAFENAMIDE FUMARATE
     Indication: HIV infection
     Dosage: UNK
     Route: 065
  3. ETHAMBUTOL [Interacting]
     Active Substance: ETHAMBUTOL HYDROCHLORIDE
     Indication: Mycobacterium avium complex infection
     Dosage: 15 MG/KG
     Route: 065
     Dates: start: 202205
  4. MOXIFLOXACIN [Interacting]
     Active Substance: MOXIFLOXACIN
     Indication: Mycobacterium avium complex infection
     Dosage: UNK
     Route: 065
     Dates: start: 202205

REACTIONS (6)
  - Intervertebral discitis [Unknown]
  - Osteomyelitis [Unknown]
  - Paraspinal abscess [Unknown]
  - Extradural abscess [Unknown]
  - Drug resistance [Unknown]
  - Drug interaction [Unknown]
